FAERS Safety Report 20497047 (Version 1)
Quarter: 2022Q1

REPORT INFORMATION
  Report Type: Spontaneous
  Country: DE (occurrence: DE)
  Receive Date: 20220221
  Receipt Date: 20220221
  Transmission Date: 20220423
  Serious: Yes (Other)
  Sender: FDA-Public Use
  Company Number: DE-ANIPHARMA-2022-DE-000023

PATIENT
  Age: 54 Year
  Sex: Male

DRUGS (20)
  1. CANDESARTAN CILEXETIL [Suspect]
     Active Substance: CANDESARTAN CILEXETIL
     Indication: Product used for unknown indication
     Route: 065
  2. CPS [Concomitant]
     Dosage: UP TO 8 SACHETS PER DAY TO THE MEAL
     Route: 065
  3. PREDNISONE [Concomitant]
     Active Substance: PREDNISONE
     Dosage: 1 AT MORNING
     Route: 065
  4. RENVELA [Concomitant]
     Active Substance: SEVELAMER CARBONATE
     Dosage: 2 IN MORNING
     Route: 065
  5. NEPRESOL [Concomitant]
     Dosage: 2 EVENING
     Route: 065
  6. RETACRIT [Concomitant]
     Active Substance: EPOETIN ALFA-EPBX
     Dosage: MONDAY AND FRIDAY
     Route: 042
  7. PANTOPRAZOL MICRO [Concomitant]
     Dosage: 1 MORNING 1 EVENING
     Route: 065
  8. METAMIZOLE [Concomitant]
     Active Substance: METAMIZOLE
     Dosage: UNK, PRN
     Route: 065
  9. AMLODIPIN ABZ [Concomitant]
     Dosage: 1 AT NOON
     Route: 065
  10. SODIUM BICARBONATE [Concomitant]
     Active Substance: SODIUM BICARBONATE
     Dosage: 2-0-2 SATURDAY AND SUNDAY
     Route: 065
  11. DOXAZOSIN [Concomitant]
     Active Substance: DOXAZOSIN MESYLATE
     Dosage: 2 EVENING
     Route: 065
  12. VALSARTAN [Suspect]
     Active Substance: VALSARTAN
     Route: 065
  13. ASPIRIN [Concomitant]
     Active Substance: ASPIRIN
     Dosage: 1 AT MORNING
     Route: 065
  14. METOPROLOL SUCCINATE [Concomitant]
     Active Substance: METOPROLOL SUCCINATE
     Dosage: 1 EVENING
     Route: 065
  15. VALSARTAN [Suspect]
     Active Substance: VALSARTAN
     Dosage: 160 MG DAILY
     Route: 048
     Dates: start: 2015, end: 201807
  16. SERTRALINE HYDROCHLORIDE [Concomitant]
     Active Substance: SERTRALINE HYDROCHLORIDE
     Route: 065
  17. CALCITRIOL [Concomitant]
     Active Substance: CALCITRIOL
     Dosage: 2 IN MORNING
     Route: 065
  18. CHOLECALCIFEROL [Concomitant]
     Active Substance: CHOLECALCIFEROL
     Route: 065
  19. DREISAVIT N [Concomitant]
     Dosage: 1 EVENING
     Route: 065
  20. PRAVASTATIN [Concomitant]
     Active Substance: PRAVASTATIN
     Dosage: 1 EVENING
     Route: 065

REACTIONS (9)
  - Depression [Unknown]
  - Mental impairment [Not Recovered/Not Resolved]
  - Fear of disease [Not Recovered/Not Resolved]
  - Job dissatisfaction [Unknown]
  - Quality of life decreased [Not Recovered/Not Resolved]
  - Anhedonia [Unknown]
  - Product contamination [Unknown]
  - Decreased interest [Unknown]
  - Anxiety disorder [Unknown]

NARRATIVE: CASE EVENT DATE: 20180101
